FAERS Safety Report 4921417-2 (Version None)
Quarter: 2006Q1

REPORT INFORMATION
  Report Type: 
  Country: None (occurrence: None)
  Receive Date: 20060224
  Receipt Date: 20060210
  Transmission Date: 20060701
  Serious: Yes (Hospitalization, Other)
  Sender: FDA-Public Use
  Company Number: NZ-AVENTIS-200611268GDDC

PATIENT
  Age: 65 Year
  Sex: Male

DRUGS (9)
  1. ARAVA [Suspect]
     Indication: RHEUMATOID ARTHRITIS
     Route: 048
     Dates: start: 20050308
  2. PREDNISONE TAB [Concomitant]
     Dosage: DOSE: UNK
  3. VERAPAMIL [Concomitant]
     Dosage: DOSE: UNK
  4. SOMAC [Concomitant]
     Dosage: DOSE: UNK
  5. FRUSEMIDE [Concomitant]
     Dosage: DOSE: UNK
  6. CALCIUM GLUCONATE [Concomitant]
     Dosage: DOSE: UNK
  7. NORMISON [Concomitant]
     Dosage: DOSE: UNK
  8. ANTIBIOTICS [Concomitant]
     Dosage: DOSE: UNK
  9. NITRO-SPRAY [Concomitant]
     Dosage: DOSE: UNK

REACTIONS (2)
  - CARDIAC FAILURE [None]
  - OEDEMA [None]
